FAERS Safety Report 9697537 (Version 1)
Quarter: 2013Q4

REPORT INFORMATION
  Report Type: Spontaneous
  Country: US (occurrence: None)
  Receive Date: 20131119
  Receipt Date: 20131119
  Transmission Date: 20140711
  Serious: Yes (Hospitalization, Other)
  Sender: FDA-Public Use
  Company Number: None

PATIENT
  Age: 55 Year
  Sex: Female
  Weight: 68.04 kg

DRUGS (6)
  1. BONIVA [Suspect]
     Indication: OSTEOPOROSIS
     Route: 048
     Dates: start: 20080116, end: 20121030
  2. FOSAMAX [Suspect]
  3. HCTZ [Concomitant]
  4. VALIUM [Concomitant]
  5. OXYCODONE [Concomitant]
  6. FLONASE [Concomitant]

REACTIONS (1)
  - Femur fracture [None]
